FAERS Safety Report 5155223-3 (Version None)
Quarter: 2006Q4

REPORT INFORMATION
  Report Type: 
  Country: None (occurrence: None)
  Receive Date: 20061121
  Receipt Date: 20061113
  Transmission Date: 20070319
  Serious: Yes (Other)
  Sender: FDA-Public Use
  Company Number: DE-JNJFOC-20061100033

PATIENT
  Age: 62 Year
  Sex: Female
  Weight: 64 kg

DRUGS (5)
  1. INFLIXIMAB [Suspect]
     Indication: ANKYLOSING SPONDYLITIS
     Route: 042
  2. PREDNISOLONE [Concomitant]
     Dosage: SINCE SEVERAL YEARS, FORMERLY WITH SIGNIFICANT HIGHER DOSES)
     Route: 065
  3. METOPROLOL [Concomitant]
     Route: 065
  4. ENALAPRIL MALEATE [Concomitant]
     Route: 065
  5. THYROXIN [Concomitant]
     Route: 065

REACTIONS (1)
  - DIABETES MELLITUS INSULIN-DEPENDENT [None]
